FAERS Safety Report 24850171 (Version 1)
Quarter: 2025Q1

REPORT INFORMATION
  Report Type: Spontaneous
  Country: US (occurrence: None)
  Receive Date: 20250115
  Receipt Date: 20250115
  Transmission Date: 20250409
  Serious: Yes (Other)
  Sender: FDA-CTU
  Company Number: None

PATIENT
  Age: 28 Year
  Sex: Male
  Weight: 105.75 kg

DRUGS (3)
  1. ESTROGENS [Suspect]
     Active Substance: ESTROGENS
  2. Anti depresants [Concomitant]
  3. VITAMIN D [Concomitant]
     Active Substance: VITAMIN D NOS

REACTIONS (2)
  - Affective disorder [None]
  - Anger [None]

NARRATIVE: CASE EVENT DATE: 20230417
